FAERS Safety Report 12617923 (Version 1)
Quarter: 2016Q3

REPORT INFORMATION
  Report Type: Spontaneous
  Country: CN (occurrence: CN)
  Receive Date: 20160803
  Receipt Date: 20160803
  Transmission Date: 20161109
  Serious: Yes (Hospitalization)
  Sender: FDA-Public Use
  Company Number: CN-ROCHE-1802870

PATIENT
  Age: 97 Year
  Sex: Male
  Weight: 59 kg

DRUGS (7)
  1. PHOSPHATIDYL CHOLINE [Concomitant]
     Active Substance: LECITHIN
     Dosage: POLYENE PHOSPHATIDYL CHOLINE
     Route: 042
     Dates: start: 20151112
  2. GLUTATHIONE [Concomitant]
     Active Substance: GLUTATHIONE
     Route: 042
     Dates: start: 20151118
  3. PHOSPHATIDYL CHOLINE [Concomitant]
     Active Substance: LECITHIN
     Route: 042
     Dates: start: 20151112
  4. GLUTATHIONE [Concomitant]
     Active Substance: GLUTATHIONE
     Dosage: REDUCED GLUTATHIONE
     Route: 042
     Dates: start: 20151112
  5. CALCIUM GLUCONATE. [Suspect]
     Active Substance: CALCIUM GLUCONATE
     Indication: THERAPEUTIC PROCEDURE
     Route: 041
     Dates: start: 20151112, end: 20151112
  6. ROCEPHIN [Suspect]
     Active Substance: CEFTRIAXONE SODIUM
     Indication: INFECTION PROPHYLAXIS
     Route: 041
     Dates: start: 20151112, end: 20151112
  7. GLUTATHIONE [Concomitant]
     Active Substance: GLUTATHIONE
     Route: 042
     Dates: start: 20151114

REACTIONS (3)
  - Hepatic function abnormal [Recovering/Resolving]
  - Cholecystitis [Unknown]
  - Cholelithiasis [Recovering/Resolving]

NARRATIVE: CASE EVENT DATE: 20151114
